FAERS Safety Report 24996731 (Version 4)
Quarter: 2025Q3

REPORT INFORMATION
  Report Type: Report from Study
  Country: US (occurrence: US)
  Receive Date: 20250221
  Receipt Date: 20250810
  Transmission Date: 20251020
  Serious: Yes (Hospitalization, Other)
  Sender: ALEXION PHARMACEUTICALS
  Company Number: US-AstraZeneca-CH-00809407A

PATIENT
  Age: 63 Year
  Sex: Female
  Weight: 68.481 kg

DRUGS (3)
  1. LOKELMA [Suspect]
     Active Substance: SODIUM ZIRCONIUM CYCLOSILICATE
     Route: 065
  2. HYDROCHLOROTHIAZIDE\METOPROLOL SUCCINATE [Suspect]
     Active Substance: HYDROCHLOROTHIAZIDE\METOPROLOL SUCCINATE
     Route: 065
  3. SOLIRIS [Suspect]
     Active Substance: ECULIZUMAB
     Indication: Neuromyelitis optica spectrum disorder

REACTIONS (31)
  - Pneumonia [Unknown]
  - Pulmonary oedema [Unknown]
  - Hypertension [Unknown]
  - COVID-19 [Unknown]
  - Myelitis transverse [Not Recovered/Not Resolved]
  - Neuropathy peripheral [Unknown]
  - White matter lesion [Not Recovered/Not Resolved]
  - Spinal cord disorder [Not Recovered/Not Resolved]
  - Hemiparesis [Unknown]
  - Vision blurred [Unknown]
  - Peripheral swelling [Unknown]
  - Radicular pain [Recovering/Resolving]
  - Musculoskeletal stiffness [Unknown]
  - Gait disturbance [Unknown]
  - Muscle spasms [Unknown]
  - Back pain [Unknown]
  - Neck pain [Unknown]
  - Hypoaesthesia [Unknown]
  - Migraine with aura [Unknown]
  - Headache [Unknown]
  - Pain [Unknown]
  - Arthralgia [Unknown]
  - Pain in extremity [Unknown]
  - Tooth infection [Unknown]
  - Hepatitis C [Recovered/Resolved]
  - Muscle spasms [Unknown]
  - Anal incontinence [Unknown]
  - Asthenia [Unknown]
  - Balance disorder [Unknown]
  - Snoring [Unknown]
  - Choking [Unknown]

NARRATIVE: CASE EVENT DATE: 20220607
